FAERS Safety Report 4880340-2 (Version None)
Quarter: 2006Q1

REPORT INFORMATION
  Report Type: 
  Country: None (occurrence: None)
  Receive Date: 20060111
  Receipt Date: 20060111
  Transmission Date: 20060701
  Serious: Yes (Other)
  Sender: FDA-Public Use
  Company Number: None

PATIENT
  Age: 67 Year
  Sex: Female
  Weight: 79 kg

DRUGS (7)
  1. LYMPHAZURIN [Suspect]
     Indication: THERAPEUTIC PROCEDURE
     Dosage: 3M INJ. IN R BREAST  (ONE TIME)
     Dates: start: 20051229
  2. BUPIVACAINE [Concomitant]
  3. VALIUM [Concomitant]
  4. PERCOCET [Concomitant]
  5. EMLA [Concomitant]
  6. BENADRYL [Concomitant]
  7. PEPCID [Concomitant]

REACTIONS (3)
  - ORBITAL OEDEMA [None]
  - RASH [None]
  - TACHYCARDIA [None]
